FAERS Safety Report 20685141 (Version 1)
Quarter: 2022Q2

REPORT INFORMATION
  Report Type: Spontaneous
  Country: SI (occurrence: SI)
  Receive Date: 20220407
  Receipt Date: 20220407
  Transmission Date: 20220721
  Serious: Yes (Hospitalization)
  Sender: FDA-Public Use
  Company Number: SI-BAYER-2022A049008

PATIENT
  Age: 59 Year
  Sex: Male

DRUGS (6)
  1. XARELTO [Suspect]
     Active Substance: RIVAROXABAN
     Indication: Atrial fibrillation
     Dosage: 20 MG, QD
     Route: 048
     Dates: start: 201905, end: 201906
  2. XARELTO [Suspect]
     Active Substance: RIVAROXABAN
     Indication: CHA2DS2-VASc-score
     Dosage: 20 MG, QD
     Route: 048
     Dates: start: 202002, end: 202106
  3. DALTEPARIN [Suspect]
     Active Substance: DALTEPARIN
     Dosage: 18000 IU, QD
     Route: 058
     Dates: start: 201909, end: 201910
  4. DALTEPARIN [Suspect]
     Active Substance: DALTEPARIN
     Dosage: 15000 IU, QD
     Route: 058
     Dates: start: 201910
  5. PERINDOPRIL [Concomitant]
     Active Substance: PERINDOPRIL
     Dosage: 8 MG
     Route: 065
  6. BISOPROLOL [Concomitant]
     Active Substance: BISOPROLOL
     Dosage: 2.5 MG

REACTIONS (2)
  - Rectal cancer [Unknown]
  - Haematochezia [Unknown]

NARRATIVE: CASE EVENT DATE: 20190601
